FAERS Safety Report 9818646 (Version 3)
Quarter: 2015Q1

REPORT INFORMATION
  Report Type: Spontaneous
  Country: US (occurrence: US)
  Receive Date: 20140115
  Receipt Date: 20150123
  Transmission Date: 20150721
  Serious: Yes (Death, Life-Threatening, Hospitalization, Other)
  Sender: FDA-Public Use
  Company Number: US-009507513-1401USA004825

PATIENT
  Sex: Female
  Weight: 117.91 kg

DRUGS (2)
  1. JANUVIA [Suspect]
     Active Substance: SITAGLIPTIN PHOSPHATE
     Dosage: 100 MG, QD
     Route: 048
     Dates: start: 20110418, end: 20111229
  2. JANUVIA [Suspect]
     Active Substance: SITAGLIPTIN PHOSPHATE
     Dosage: 100 MG, QD
     Route: 048
     Dates: start: 20090908, end: 20100402

REACTIONS (33)
  - Renal cyst [Unknown]
  - Tooth disorder [Unknown]
  - Rash [Unknown]
  - Type 2 diabetes mellitus [Unknown]
  - Hypertension [Unknown]
  - Aortic calcification [Unknown]
  - Diverticulum [Unknown]
  - Gastritis [Unknown]
  - Depression [Unknown]
  - Metastases to lung [Unknown]
  - Autoimmune thyroiditis [Unknown]
  - Sinus disorder [Unknown]
  - Irritable bowel syndrome [Unknown]
  - Emphysema [Unknown]
  - Chronic kidney disease [Not Recovered/Not Resolved]
  - Duodenitis [Unknown]
  - Cholecystectomy [Unknown]
  - Breast lump removal [Unknown]
  - Osteoarthritis [Unknown]
  - Pancreatic carcinoma metastatic [Fatal]
  - Metastases to liver [Unknown]
  - Biopsy liver [Unknown]
  - Hypothyroidism [Unknown]
  - Spinal osteoarthritis [Unknown]
  - Mass [Unknown]
  - Haemorrhage [Unknown]
  - Chemotherapy [Unknown]
  - Biopsy pancreas [Unknown]
  - Adverse drug reaction [Unknown]
  - Nodule [Unknown]
  - Gastric disorder [Unknown]
  - Hyporeflexia [Unknown]
  - Fall [Unknown]

NARRATIVE: CASE EVENT DATE: 2009
